FAERS Safety Report 12265385 (Version 1)
Quarter: 2016Q2

REPORT INFORMATION
  Report Type: Report from Study
  Country: BR (occurrence: BR)
  Receive Date: 20160413
  Receipt Date: 20160413
  Transmission Date: 20160815
  Serious: Yes (Other)
  Sender: FDA-Public Use
  Company Number: BR-ABBVIE-16P-020-1604261-00

PATIENT
  Age: 59 Year
  Sex: Female
  Weight: 69 kg

DRUGS (3)
  1. SYNTHROID [Suspect]
     Active Substance: LEVOTHYROXINE SODIUM
     Route: 065
     Dates: start: 1998
  2. GLIFAGE [Concomitant]
     Active Substance: METFORMIN HYDROCHLORIDE
     Indication: DIABETES MELLITUS
     Dosage: DAILY DOSE:1500 MG; AFTER BREAKFAST, LUNCH, DINNER
     Route: 048
     Dates: start: 2013
  3. SYNTHROID [Suspect]
     Active Substance: LEVOTHYROXINE SODIUM
     Indication: THYROID DISORDER
     Dosage: DAILY DOSE: 50 MICROGRAM; 7 AM, FASTING
     Route: 048

REACTIONS (5)
  - Dizziness [Recovered/Resolved]
  - Blood cholesterol abnormal [Unknown]
  - Diabetes mellitus [Recovered/Resolved]
  - Drug dose omission [Unknown]
  - Weight increased [Recovering/Resolving]

NARRATIVE: CASE EVENT DATE: 20130731
